FAERS Safety Report 24175865 (Version 6)
Quarter: 2024Q3

REPORT INFORMATION
  Report Type: Spontaneous
  Country: JP (occurrence: JP)
  Receive Date: 20240805
  Receipt Date: 20240930
  Transmission Date: 20241016
  Serious: Yes (Hospitalization)
  Sender: JOHNSON AND JOHNSON
  Company Number: JP-JNJFOC-20240807427

PATIENT

DRUGS (5)
  1. RILPIVIRINE [Suspect]
     Active Substance: RILPIVIRINE
     Indication: HIV infection
     Dosage: DOSE UNKNOWN
     Route: 030
     Dates: start: 20240708, end: 20240708
  2. RILPIVIRINE [Suspect]
     Active Substance: RILPIVIRINE
     Route: 030
     Dates: start: 20240813
  3. VOCABRIA [Concomitant]
     Active Substance: CABOTEGRAVIR SODIUM
     Dosage: DOSE UNKNOWN
     Route: 030
     Dates: start: 20240708, end: 20240708
  4. VOCABRIA [Concomitant]
     Active Substance: CABOTEGRAVIR SODIUM
     Dosage: DOSE UNKNOWN
     Route: 030
     Dates: start: 20240813
  5. CORTRIL [Concomitant]
     Active Substance: HYDROCORTISONE
     Dosage: PERORAL MEDICINE?DOSE UNKNOWN
     Route: 048

REACTIONS (2)
  - Renal disorder [Recovered/Resolved]
  - Pyrexia [Recovered/Resolved]

NARRATIVE: CASE EVENT DATE: 20240701
